FAERS Safety Report 6253552-3 (Version None)
Quarter: 2009Q3

REPORT INFORMATION
  Report Type: 
  Country: None (occurrence: None)
  Receive Date: 20090701
  Receipt Date: 20090622
  Transmission Date: 20100115
  Serious: Yes (Death)
  Sender: FDA-Public Use
  Company Number: JP-ABBOTT-08P-087-0444612-00

PATIENT
  Age: 86 Year
  Sex: Male

DRUGS (9)
  1. LEUPLIN SR FOR INJECTION 11.25 MG [Suspect]
     Indication: PROSTATE CANCER STAGE IV
     Route: 058
     Dates: start: 20060515, end: 20070131
  2. LEUPLIN SR FOR INJECTION 11.25 MG [Suspect]
     Dates: start: 20060320, end: 20060417
  3. CASODEX [Concomitant]
     Indication: PROSTATE CANCER STAGE IV
     Route: 048
     Dates: start: 20060307, end: 20060405
  4. CASODEX [Concomitant]
     Route: 048
     Dates: start: 20061214, end: 20070131
  5. ESTRAMUSTINE PHOSPHATE SODIUM [Concomitant]
     Indication: PROSTATE CANCER STAGE IV
     Route: 048
     Dates: start: 20070226, end: 20070310
  6. DECADRON [Concomitant]
     Indication: PROSTATE CANCER STAGE IV
     Route: 048
     Dates: start: 20070329, end: 20070822
  7. AVISHOT [Concomitant]
     Indication: DYSURIA
     Route: 048
     Dates: start: 20070131, end: 20070301
  8. DEPAS [Concomitant]
     Indication: POLLAKIURIA
     Route: 048
     Dates: start: 20070131, end: 20070301
  9. GASTER D [Concomitant]
     Indication: GASTRIC ULCER
     Route: 048
     Dates: start: 20070329, end: 20070822

REACTIONS (1)
  - PROSTATE CANCER [None]
